FAERS Safety Report 11170983 (Version 1)
Quarter: 2015Q2

REPORT INFORMATION
  Report Type: Spontaneous
  Country: US (occurrence: US)
  Receive Date: 20150608
  Receipt Date: 20150608
  Transmission Date: 20150821
  Serious: No
  Sender: FDA-Public Use
  Company Number: US-BIOGENIDEC-2015BI076780

PATIENT
  Age: 36 Year
  Sex: Female

DRUGS (9)
  1. AMBIEN CR [Concomitant]
     Active Substance: ZOLPIDEM TARTRATE
  2. VITAMIN B-12 ER [Concomitant]
  3. VITAMIN D3 [Concomitant]
     Active Substance: CHOLECALCIFEROL
  4. BACLOFEN. [Concomitant]
     Active Substance: BACLOFEN
  5. TECFIDERA [Suspect]
     Active Substance: DIMETHYL FUMARATE
     Indication: MULTIPLE SCLEROSIS
     Route: 048
     Dates: start: 20140228
  6. LEXAPRO [Concomitant]
     Active Substance: ESCITALOPRAM OXALATE
  7. VITAMIN B12 [Concomitant]
     Active Substance: CYANOCOBALAMIN
  8. CLONAZEPAM. [Concomitant]
     Active Substance: CLONAZEPAM
  9. ADDERALL [Concomitant]
     Active Substance: AMPHETAMINE ASPARTATE\AMPHETAMINE SULFATE\DEXTROAMPHETAMINE SACCHARATE\DEXTROAMPHETAMINE SULFATE

REACTIONS (2)
  - Hot flush [Recovered/Resolved]
  - Night sweats [Recovered/Resolved]
